FAERS Safety Report 22147115 (Version 1)
Quarter: 2023Q1

REPORT INFORMATION
  Report Type: Spontaneous
  Country: US (occurrence: None)
  Receive Date: 20230327
  Receipt Date: 20230327
  Transmission Date: 20230418
  Serious: Yes (Hospitalization, Other)
  Sender: FDA-Public Use
  Company Number: None

PATIENT
  Sex: Male

DRUGS (5)
  1. JANUVIA [Suspect]
     Active Substance: SITAGLIPTIN PHOSPHATE
  2. PIOGLITAZONE [Suspect]
     Active Substance: PIOGLITAZONE
  3. GLIPIZIDE ER [Suspect]
     Active Substance: GLIPIZIDE
  4. TOPIRAMATE [Suspect]
     Active Substance: TOPIRAMATE
  5. METFORMIN HYDROCHLORIDE [Suspect]
     Active Substance: METFORMIN HYDROCHLORIDE
     Indication: Blood glucose abnormal
     Route: 048
     Dates: start: 20210127

REACTIONS (1)
  - Helicobacter infection [None]
